FAERS Safety Report 6742725-9 (Version None)
Quarter: 2010Q2

REPORT INFORMATION
  Report Type: 
  Country: None (occurrence: None)
  Receive Date: 20100526
  Receipt Date: 20091102
  Transmission Date: 20101027
  Serious: No
  Sender: FDA-Public Use
  Company Number: US-ABBOTT-09P-163-0606699-00

PATIENT
  Sex: Female
  Weight: 81.266 kg

DRUGS (7)
  1. ZEMPLAR [Suspect]
     Indication: MALABSORPTION
     Dates: start: 20090901
  2. VITAMIN D [Concomitant]
     Indication: HYPOVITAMINOSIS
  3. ALLOPURINOL [Concomitant]
     Indication: GOUT
  4. PRAVASTATIN [Concomitant]
     Indication: BLOOD CHOLESTEROL INCREASED
  5. DARVOCET [Concomitant]
     Indication: PAIN
  6. CITALOPRAM [Concomitant]
     Indication: DEPRESSION
  7. METOPROLOL [Concomitant]
     Indication: HYPERTENSION

REACTIONS (3)
  - FATIGUE [None]
  - MUSCULOSKELETAL PAIN [None]
  - PAIN IN EXTREMITY [None]
